FAERS Safety Report 9107930 (Version 2)
Quarter: 2013Q1

REPORT INFORMATION
  Report Type: Spontaneous
  Country: US (occurrence: US)
  Receive Date: 20130221
  Receipt Date: 20130305
  Transmission Date: 20140127
  Serious: Yes (Other)
  Sender: FDA-Public Use
  Company Number: US-AMGEN-USASP2013011322

PATIENT
  Age: 61 Year
  Sex: Male

DRUGS (2)
  1. ENBREL [Suspect]
     Indication: PSORIATIC ARTHROPATHY
     Dosage: 50 MG, QWK
     Dates: start: 20041201
  2. ENBREL [Suspect]
     Indication: PSORIASIS

REACTIONS (8)
  - Coronary artery occlusion [Recovered/Resolved]
  - Back pain [Not Recovered/Not Resolved]
  - Bronchial disorder [Recovered/Resolved]
  - Food poisoning [Recovered/Resolved]
  - Herpes zoster [Recovered/Resolved]
  - Sinusitis [Recovered/Resolved]
  - Psoriasis [Not Recovered/Not Resolved]
  - Prostate infection [Recovered/Resolved]
